FAERS Safety Report 4577448-8 (Version None)
Quarter: 2005Q1

REPORT INFORMATION
  Report Type: 
  Country: None (occurrence: None)
  Receive Date: 20050208
  Receipt Date: 20050121
  Transmission Date: 20050727
  Serious: Yes (Hospitalization)
  Sender: FDA-Public Use
  Company Number: B0365237A

PATIENT
  Age: 75 Year
  Sex: Female

DRUGS (9)
  1. LANOXIN [Suspect]
     Dosage: .25 MG/SEE DOSAGE TEXT/ORAL
     Route: 048
  2. CLARITHROMYCIN [Suspect]
     Indication: HELICOBACTER INFECTION
     Dosage: 500 MG/TWICE PER DAY
  3. AMOXICILLIN TRIHYDRATE [Concomitant]
  4. OMEPRAZOLE [Concomitant]
  5. LOSARTAN POTASSIUM [Concomitant]
  6. FRUSEMIDE [Concomitant]
  7. AMLODIPINE [Concomitant]
  8. NITROGLYCERIN [Concomitant]
  9. SINTROM [Concomitant]

REACTIONS (8)
  - ABDOMINAL PAIN [None]
  - ATRIAL FIBRILLATION [None]
  - BRADYCARDIA [None]
  - HELICOBACTER INFECTION [None]
  - INTERNATIONAL NORMALISED RATIO INCREASED [None]
  - NAUSEA [None]
  - THERAPEUTIC AGENT TOXICITY [None]
  - VOMITING [None]
